FAERS Safety Report 4731880-8 (Version None)
Quarter: 2005Q3

REPORT INFORMATION
  Report Type: 
  Country: None (occurrence: None)
  Receive Date: 20050725
  Receipt Date: 20041118
  Transmission Date: 20060218
  Serious: Yes (Life-Threatening, Hospitalization)
  Sender: FDA-Public Use
  Company Number: WAES 0411USA03235

PATIENT
  Age: 87 Year
  Sex: Female

DRUGS (5)
  1. VIOXX [Suspect]
     Indication: BACK PAIN
     Dosage: PO
     Dates: start: 20020101, end: 20040101
  2. LASIX [Concomitant]
  3. ULTRAM [Concomitant]
  4. XANAX [Concomitant]
  5. POTASSIUM CHLORIDE [Concomitant]

REACTIONS (2)
  - ABDOMINAL PAIN UPPER [None]
  - MEDICATION ERROR [None]
